FAERS Safety Report 5726260-2 (Version None)
Quarter: 2008Q2

REPORT INFORMATION
  Report Type: 
  Country: None (occurrence: None)
  Receive Date: 20080501
  Receipt Date: 20080501
  Transmission Date: 20081010
  Serious: Yes (Hospitalization, Disabling)
  Sender: FDA-Public Use
  Company Number: None

PATIENT
  Age: 54 Year
  Sex: Male
  Weight: 106.5953 kg

DRUGS (3)
  1. RHINOCORT [Suspect]
     Indication: NASAL CONGESTION
     Dosage: 32MCG 2 SPRAYS DAILY NASAL
     Route: 045
     Dates: start: 20050601, end: 20060630
  2. RHINOCORT [Suspect]
     Indication: SLEEP DISORDER
     Dosage: 32MCG 2 SPRAYS DAILY NASAL
     Route: 045
     Dates: start: 20050601, end: 20060630
  3. RHINOCORT [Suspect]
     Indication: SNORING
     Dosage: 32MCG 2 SPRAYS DAILY NASAL
     Route: 045
     Dates: start: 20050601, end: 20060630

REACTIONS (1)
  - CATARACT SUBCAPSULAR [None]
